FAERS Safety Report 4863084-2 (Version None)
Quarter: 2005Q4

REPORT INFORMATION
  Report Type: 
  Country: None (occurrence: None)
  Receive Date: 20051221
  Receipt Date: 20051215
  Transmission Date: 20060501
  Serious: Yes (Death)
  Sender: FDA-Public Use
  Company Number: FR-MERCK-0512FRA00070

PATIENT
  Age: 92 Year
  Sex: Female

DRUGS (7)
  1. STROMECTOL [Suspect]
     Indication: PROPHYLAXIS
     Route: 048
     Dates: start: 20051122, end: 20051122
  2. STROMECTOL [Suspect]
     Route: 048
     Dates: start: 20051129, end: 20051129
  3. CALCIUM (UNSPECIFIED) [Concomitant]
     Indication: OSTEOPOROSIS
     Route: 048
     Dates: end: 20051204
  4. BISOPROLOL FUMARATE AND HYDROCHLOROTHIAZIDE [Concomitant]
     Indication: HYPERTENSION
     Route: 048
     Dates: end: 20051204
  5. AMBROXOL [Concomitant]
     Indication: RESPIRATORY DISORDER
     Route: 048
     Dates: end: 20051204
  6. PAROXETINE HYDROCHLORIDE [Concomitant]
     Indication: DEPRESSION
     Route: 048
     Dates: end: 20051204
  7. NICERGOLINE [Concomitant]
     Route: 048
     Dates: end: 20051204

REACTIONS (1)
  - DEATH [None]
